FAERS Safety Report 8495014-9 (Version None)
Quarter: 2012Q3

REPORT INFORMATION
  Report Type: 
  Country: None (occurrence: None)
  Receive Date: 20120709
  Receipt Date: 20120628
  Transmission Date: 20120928
  Serious: Yes (Hospitalization, Other)
  Sender: FDA-Public Use
  Company Number: CA-JNJFOC-20120614707

PATIENT
  Sex: Male

DRUGS (2)
  1. BARIUM [Suspect]
     Indication: DIAGNOSTIC PROCEDURE
     Route: 048
     Dates: start: 20120626
  2. REMICADE [Suspect]
     Indication: CROHN'S DISEASE
     Route: 042
     Dates: start: 20120614

REACTIONS (2)
  - ABDOMINAL PAIN [None]
  - ABSCESS [None]
